FAERS Safety Report 7906543-8 (Version None)
Quarter: 2011Q4

REPORT INFORMATION
  Report Type: 
  Country: None (occurrence: None)
  Receive Date: 20111110
  Receipt Date: 20111107
  Transmission Date: 20120403
  Serious: Yes (Life-Threatening, Hospitalization, Other)
  Sender: FDA-Public Use
  Company Number: GB-PFIZER INC-2011266618

PATIENT
  Age: 42 Year
  Sex: Female
  Weight: 75 kg

DRUGS (3)
  1. PHENYTOIN [Suspect]
     Indication: EPILEPSY
     Dosage: UNK
     Route: 048
     Dates: start: 20110830, end: 20111014
  2. PARACETAMOL [Concomitant]
  3. HALAVEN [Suspect]
     Indication: BREAST CANCER METASTATIC
     Dosage: UNK
     Route: 042
     Dates: start: 20111004, end: 20111004

REACTIONS (4)
  - PYREXIA [None]
  - HERPES ZOSTER DISSEMINATED [None]
  - TOXIC EPIDERMAL NECROLYSIS [None]
  - RASH [None]
